FAERS Safety Report 24401297 (Version 1)
Quarter: 2024Q4

REPORT INFORMATION
  Report Type: Spontaneous
  Country: DK (occurrence: DK)
  Receive Date: 20241007
  Receipt Date: 20241007
  Transmission Date: 20250115
  Serious: Yes (Other)
  Sender: COLLEGIUM PHARMACEUTICAL
  Company Number: DK-INDIVIOR EUROPE LIMITED-INDV-156042-2024

PATIENT
  Age: 16 Year
  Sex: Male

DRUGS (7)
  1. NUCYNTA [Suspect]
     Active Substance: TAPENTADOL HYDROCHLORIDE
     Indication: Product used for unknown indication
     Dosage: UNK UNK, UNKNOWN
     Route: 048
  2. TRAMADOL HYDROCHLORIDE [Suspect]
     Active Substance: TRAMADOL HYDROCHLORIDE
     Indication: Product used for unknown indication
     Dosage: 225 MG, UNKNOWN
     Route: 065
  3. BUPRENORPHINE HYDROCHLORIDE [Suspect]
     Active Substance: BUPRENORPHINE HYDROCHLORIDE
     Indication: Drug dependence
     Dosage: 2.4 MILLIGRAM, 1/DAY
     Route: 060
  4. BUPRENORPHINE HYDROCHLORIDE [Suspect]
     Active Substance: BUPRENORPHINE HYDROCHLORIDE
     Dosage: 0.4 MICROGRAM, UNKNOWN
     Route: 060
  5. CARISOPRODOL [Suspect]
     Active Substance: CARISOPRODOL
     Indication: Product used for unknown indication
     Dosage: 225 MILLIGRAM, UNKNOWN
     Route: 048
  6. OXYCODONE [Suspect]
     Active Substance: OXYCODONE
     Indication: Product used for unknown indication
     Dosage: UNK, UNKNOWN
     Route: 065
  7. BUPRENORPHINE [Suspect]
     Active Substance: BUPRENORPHINE
     Indication: Product used for unknown indication
     Dosage: 2 MILLIGRAM, ONCE

REACTIONS (20)
  - Muscular weakness [Recovering/Resolving]
  - Cyanosis [Recovering/Resolving]
  - Slow speech [Recovering/Resolving]
  - Neutrophil count decreased [Recovering/Resolving]
  - Toxicity to various agents [Recovering/Resolving]
  - Drug dependence [Recovered/Resolved]
  - Drug abuse [Recovered/Resolved]
  - Drug dependence [Recovered/Resolved]
  - Rash [Recovering/Resolving]
  - Somnolence [Recovering/Resolving]
  - Influenza like illness [Recovered/Resolved]
  - Drug interaction [Recovering/Resolving]
  - Toxicity to various agents [Recovering/Resolving]
  - Chest pain [Recovering/Resolving]
  - Miosis [Recovering/Resolving]
  - Mydriasis [Recovered/Resolved]
  - Therapeutic product effect decreased [Recovering/Resolving]
  - Drug withdrawal syndrome [Recovered/Resolved]
  - Withdrawal syndrome [Recovered/Resolved]
  - Counterfeit product administered [Recovered/Resolved]
